FAERS Safety Report 7985817-9 (Version None)
Quarter: 2011Q4

REPORT INFORMATION
  Report Type: 
  Country: None (occurrence: None)
  Receive Date: 20111214
  Receipt Date: 20111130
  Transmission Date: 20120403
  Serious: Yes (Death, Life-Threatening, Hospitalization, Disabling, Other)
  Sender: FDA-Public Use
  Company Number: 2009AL002974

PATIENT
  Age: 66 Year
  Sex: Male
  Weight: 86.1834 kg

DRUGS (33)
  1. AMIODARONE [Concomitant]
  2. DIGOXIN [Suspect]
     Indication: ATRIAL FIBRILLATION
     Dosage: 0.125 MG;TIW;PO
     Route: 048
     Dates: start: 20070314
  3. COREG [Concomitant]
  4. IV FLUIDS [Concomitant]
  5. DOBUTAMINE HCL [Concomitant]
  6. LEVAQUIN [Concomitant]
  7. SOLU-MEDROL [Concomitant]
  8. ADVAIR DISKUS 100/50 [Concomitant]
  9. PREDNISONE TAB [Concomitant]
  10. APAP TAB [Concomitant]
  11. ANTIBIOTICS [Concomitant]
  12. CORTICOSTEROIDS [Concomitant]
  13. DIURETICS [Concomitant]
  14. ALBUTEROL [Concomitant]
  15. ASPIRIN [Concomitant]
  16. LISINOPRIL [Concomitant]
  17. CORDARONE [Concomitant]
  18. CARDIOZYME CD [Concomitant]
  19. COUMADIN [Concomitant]
  20. TOBRAMYCIN [Concomitant]
  21. DOPAMINE HCL [Concomitant]
  22. LASIX [Concomitant]
  23. LEVOTHYROXINE SODIUM [Concomitant]
  24. AMBIEN [Concomitant]
  25. BACTRIM DS [Concomitant]
  26. LOVENOX [Concomitant]
  27. NITROGLYCERIN [Concomitant]
  28. MUCOMYST [Concomitant]
  29. ATROVENT [Concomitant]
  30. MOXIFLOXACIN [Concomitant]
  31. DOBUTAMINE HCL [Concomitant]
  32. MUCINEX [Concomitant]
  33. MEDROL [Concomitant]

REACTIONS (65)
  - PULMONARY EMBOLISM [None]
  - BUNDLE BRANCH BLOCK LEFT [None]
  - SCAR [None]
  - LEFT ATRIAL DILATATION [None]
  - PALPITATIONS [None]
  - ARTERIAL OCCLUSIVE DISEASE [None]
  - ACUTE PRERENAL FAILURE [None]
  - HYPOXIA [None]
  - BRAIN NATRIURETIC PEPTIDE INCREASED [None]
  - CARDIAC FAILURE CONGESTIVE [None]
  - LOBAR PNEUMONIA [None]
  - SINUS TACHYCARDIA [None]
  - ANXIETY [None]
  - CARDIO-RESPIRATORY ARREST [None]
  - ATRIAL FIBRILLATION [None]
  - WHEELCHAIR USER [None]
  - ABDOMINAL PAIN [None]
  - CONSTIPATION [None]
  - ISCHAEMIC CARDIOMYOPATHY [None]
  - BLOOD GLUCOSE INCREASED [None]
  - MESENTERIC ARTERY STENOSIS [None]
  - EJECTION FRACTION DECREASED [None]
  - DIASTOLIC DYSFUNCTION [None]
  - SLEEP APNOEA SYNDROME [None]
  - MOVEMENT DISORDER [None]
  - TOXICITY TO VARIOUS AGENTS [None]
  - PAIN [None]
  - ECONOMIC PROBLEM [None]
  - UNEVALUABLE EVENT [None]
  - RESPIRATORY FAILURE [None]
  - RESPIRATORY DISTRESS [None]
  - MYOCARDIAL INFARCTION [None]
  - ABDOMINAL DISTENSION [None]
  - PULMONARY OEDEMA [None]
  - ATRIOVENTRICULAR BLOCK FIRST DEGREE [None]
  - RECTAL HAEMORRHAGE [None]
  - LARGE INTESTINE PERFORATION [None]
  - HYPOTENSION [None]
  - INTESTINAL ISCHAEMIA [None]
  - CARDIOACTIVE DRUG LEVEL ABOVE THERAPEUTIC [None]
  - VENTRICULAR EXTRASYSTOLES [None]
  - AORTIC VALVE SCLEROSIS [None]
  - CORONARY ARTERY DISEASE [None]
  - ABDOMINAL ABSCESS [None]
  - RENAL ARTERY STENOSIS [None]
  - OXYGEN SATURATION DECREASED [None]
  - INTERNATIONAL NORMALISED RATIO INCREASED [None]
  - STAPHYLOCOCCAL INFECTION [None]
  - MITRAL VALVE INCOMPETENCE [None]
  - PULSELESS ELECTRICAL ACTIVITY [None]
  - BRADYCARDIA [None]
  - EMOTIONAL DISTRESS [None]
  - COLITIS ISCHAEMIC [None]
  - CHRONIC OBSTRUCTIVE PULMONARY DISEASE [None]
  - SPUTUM PURULENT [None]
  - PNEUMONIA BACTERIAL [None]
  - TRICUSPID VALVE INCOMPETENCE [None]
  - PULMONARY HYPERTENSION [None]
  - SUPRAVENTRICULAR EXTRASYSTOLES [None]
  - RIGHT ATRIAL DILATATION [None]
  - HYPERTENSION [None]
  - HYPOTHYROIDISM [None]
  - RENAL FAILURE CHRONIC [None]
  - INFECTIOUS PERITONITIS [None]
  - FATIGUE [None]
